FAERS Safety Report 13142088 (Version 4)
Quarter: 2017Q2

REPORT INFORMATION
  Report Type: Spontaneous
  Country: US (occurrence: US)
  Receive Date: 20170124
  Receipt Date: 20170601
  Transmission Date: 20170830
  Serious: Yes (Other)
  Sender: FDA-Public Use
  Company Number: US-ASTELLAS-2016US048834

PATIENT
  Sex: Male

DRUGS (3)
  1. LUPRON [Concomitant]
     Active Substance: LEUPROLIDE ACETATE
     Indication: PRODUCT USED FOR UNKNOWN INDICATION
     Dosage: UNK UNK, UNKNOWN FREQ.
     Route: 065
  2. XTANDI [Suspect]
     Active Substance: ENZALUTAMIDE
     Indication: PROSTATE CANCER
     Route: 048
     Dates: start: 20161118
  3. XTANDI [Suspect]
     Active Substance: ENZALUTAMIDE
     Dosage: 160 MG, DAILY (SOMETIMES 4 CAPSULES ONCE DAILY AND SOMETIMES 2 CAPSULES TWICE DAILY)
     Route: 048
     Dates: start: 20161218

REACTIONS (10)
  - Haematochezia [Unknown]
  - Depressed mood [Unknown]
  - Mood altered [Unknown]
  - Erectile dysfunction [Unknown]
  - Haemoglobin decreased [Unknown]
  - Weight decreased [Unknown]
  - Constipation [Unknown]
  - Terminal state [Unknown]
  - Pain [Unknown]
  - Peripheral swelling [Unknown]
